FAERS Safety Report 7523974-9 (Version None)
Quarter: 2011Q2

REPORT INFORMATION
  Report Type: 
  Country: None (occurrence: None)
  Receive Date: 20110603
  Receipt Date: 20110527
  Transmission Date: 20111010
  Serious: Yes (Death, Other)
  Sender: FDA-Public Use
  Company Number: US-CELGENEUS-163-21880-11053856

PATIENT
  Age: 71 Year
  Sex: Male

DRUGS (11)
  1. OMEPRAZOLE [Concomitant]
     Route: 065
  2. REVLIMID [Suspect]
     Indication: MULTIPLE MYELOMA
     Dosage: 25 MILLIGRAM
     Route: 048
     Dates: start: 20090801, end: 20110101
  3. ATENOLOL [Concomitant]
     Route: 065
  4. HYDROCODONE BITARTRATE AND ACETAMINOPHEN [Concomitant]
     Route: 065
  5. MORPHINE [Concomitant]
     Route: 065
  6. PROCHLORPERAZINE TAB [Concomitant]
     Route: 065
  7. SIMVASTATIN [Concomitant]
     Route: 065
  8. AZACITIDINE [Suspect]
     Indication: MULTIPLE MYELOMA
     Route: 050
     Dates: start: 20110201
  9. LORAZEPAM [Concomitant]
     Route: 065
  10. BISACODYL [Concomitant]
     Route: 065
  11. LOSARTAN POTASSIUM [Concomitant]
     Route: 065

REACTIONS (2)
  - PANCYTOPENIA [None]
  - DEATH [None]
